FAERS Safety Report 20767307 (Version 1)
Quarter: 2022Q2

REPORT INFORMATION
  Report Type: Spontaneous
  Country: FR (occurrence: FR)
  Receive Date: 20220429
  Receipt Date: 20220429
  Transmission Date: 20220721
  Serious: Yes (Hospitalization)
  Sender: FDA-Public Use
  Company Number: None

PATIENT
  Age: 82 Year
  Sex: Male

DRUGS (11)
  1. AMOXICILLIN [Suspect]
     Active Substance: AMOXICILLIN
     Indication: Urinary tract infection
     Dosage: 1G 3X/D, UNIT DOSE: 3 GM, FREQUENCY TIME : 1 DAY, DURATION : 7 DAY
     Route: 048
     Dates: start: 20211110, end: 20211117
  2. WARFARIN SODIUM [Concomitant]
     Active Substance: WARFARIN SODIUM
  3. SPIRONOLACTONE [Concomitant]
     Active Substance: SPIRONOLACTONE
  4. BROMAZEPAM [Concomitant]
     Active Substance: BROMAZEPAM
  5. ARANESP [Concomitant]
     Active Substance: DARBEPOETIN ALFA
  6. FUROSEMIDE [Concomitant]
     Active Substance: FUROSEMIDE
  7. ALLOPURINOL [Concomitant]
     Active Substance: ALLOPURINOL
  8. DOLIPRANE [Concomitant]
     Active Substance: ACETAMINOPHEN
  9. BISOPROLOL [Concomitant]
     Active Substance: BISOPROLOL
  10. SODIUM BICARBONATE [Concomitant]
     Active Substance: SODIUM BICARBONATE
     Dosage: BICARBONATE DE SODIUM
  11. PRAVASTATIN SODIUM [Concomitant]
     Active Substance: PRAVASTATIN SODIUM
     Dosage: STRENGTH: 20 MG

REACTIONS (1)
  - Cutaneous vasculitis [Recovering/Resolving]

NARRATIVE: CASE EVENT DATE: 20211124
